FAERS Safety Report 11146803 (Version 2)
Quarter: 2015Q2

REPORT INFORMATION
  Report Type: Report from Study
  Country: CH (occurrence: CH)
  Receive Date: 20150528
  Receipt Date: 20150619
  Transmission Date: 20150821
  Serious: Yes (Other)
  Sender: FDA-Public Use
  Company Number: CH-ABBVIE-15P-151-1395015-00

PATIENT
  Age: 81 Year
  Sex: Female

DRUGS (1)
  1. DUODOPA [Suspect]
     Active Substance: CARBIDOPA\LEVODOPA
     Indication: PARKINSON^S DISEASE
     Dosage: MD: 4ML; CDD: 3.2ML/H; CND: 1.5ML/H; ED: 1ML;
     Route: 050
     Dates: start: 20140929

REACTIONS (5)
  - Ascites [Recovered/Resolved]
  - Device dislocation [Unknown]
  - Abdominal pain [Recovered/Resolved]
  - Urinary tract infection [Unknown]
  - Stoma site pain [Not Recovered/Not Resolved]

NARRATIVE: CASE EVENT DATE: 201505
